FAERS Safety Report 7522149-7 (Version None)
Quarter: 2011Q2

REPORT INFORMATION
  Report Type: 
  Country: None (occurrence: None)
  Receive Date: 20110603
  Receipt Date: 20110531
  Transmission Date: 20111010
  Serious: Yes (Other)
  Sender: FDA-Public Use
  Company Number: US-PFIZER INC-2011117371

PATIENT
  Sex: Female
  Weight: 68 kg

DRUGS (3)
  1. PREMARIN [Suspect]
     Indication: VULVOVAGINAL DRYNESS
     Dosage: UNK
     Dates: start: 20110526, end: 20110530
  2. PREMARIN [Suspect]
     Indication: FUNGAL INFECTION
  3. PREMARIN [Suspect]
     Indication: VULVOVAGINAL ERYTHEMA

REACTIONS (5)
  - HAEMORRHAGE [None]
  - VULVOVAGINAL PRURITUS [None]
  - ABDOMINAL PAIN [None]
  - ERYTHEMA [None]
  - DIARRHOEA [None]
